FAERS Safety Report 26170095 (Version 1)
Quarter: 2025Q4

REPORT INFORMATION
  Report Type: Spontaneous
  Country: CN (occurrence: CN)
  Receive Date: 20251217
  Receipt Date: 20251217
  Transmission Date: 20260118
  Serious: Yes (Hospitalization)
  Sender: NOVARTIS
  Company Number: CN-002147023-NVSC2025CN190524

PATIENT
  Age: 68 Year
  Sex: Male

DRUGS (8)
  1. CAPMATINIB [Suspect]
     Active Substance: CAPMATINIB
     Indication: Lung neoplasm malignant
     Dosage: 300 MG, QD
     Route: 048
     Dates: start: 20240601, end: 20251210
  2. CAPMATINIB [Suspect]
     Active Substance: CAPMATINIB
     Indication: Metastases to central nervous system
  3. CAPMATINIB [Suspect]
     Active Substance: CAPMATINIB
     Indication: Metastases to bone
  4. CAPMATINIB [Suspect]
     Active Substance: CAPMATINIB
     Indication: Metastases to adrenals
  5. OSIMERTINIB [Suspect]
     Active Substance: OSIMERTINIB
     Indication: Lung neoplasm malignant
     Dosage: 160 MG, QD
     Route: 048
     Dates: start: 20240601, end: 20251210
  6. OSIMERTINIB [Suspect]
     Active Substance: OSIMERTINIB
     Indication: Metastases to central nervous system
  7. OSIMERTINIB [Suspect]
     Active Substance: OSIMERTINIB
     Indication: Metastases to bone
  8. OSIMERTINIB [Suspect]
     Active Substance: OSIMERTINIB
     Indication: Metastases to adrenals

REACTIONS (3)
  - Vomiting [Recovering/Resolving]
  - Palpitations [Recovering/Resolving]
  - Off label use [Unknown]

NARRATIVE: CASE EVENT DATE: 20251209
